FAERS Safety Report 10649850 (Version 1)
Quarter: 2014Q4

REPORT INFORMATION
  Report Type: Spontaneous
  Country: FR (occurrence: FR)
  Receive Date: 20141212
  Receipt Date: 20141212
  Transmission Date: 20150529
  Serious: Yes (Other)
  Sender: FDA-Public Use
  Company Number: FR-BAYER-2014-179345

PATIENT
  Age: 61 Year
  Sex: Male

DRUGS (1)
  1. STIVARGA [Suspect]
     Active Substance: REGORAFENIB
     Indication: COLORECTAL CANCER METASTATIC
     Dosage: 160 MG DAILY (21 DAYS EVERY 28 DAYS)
     Route: 048

REACTIONS (4)
  - Palmar-plantar erythrodysaesthesia syndrome [None]
  - Hair texture abnormal [None]
  - Hair colour changes [None]
  - Melanocytic naevus [None]
